FAERS Safety Report 16618659 (Version 1)
Quarter: 2019Q3

REPORT INFORMATION
  Report Type: Spontaneous
  Country: US (occurrence: US)
  Receive Date: 20190723
  Receipt Date: 20190723
  Transmission Date: 20191004
  Serious: No
  Sender: FDA-Public Use
  Company Number: CZ-ALNYLAM PHARMACEUTICALS, INC.-ALN-2019-000191

PATIENT
  Sex: Male

DRUGS (1)
  1. ONPATTRO [Suspect]
     Active Substance: PATISIRAN SODIUM
     Indication: HEREDITARY NEUROPATHIC AMYLOIDOSIS
     Dosage: UNK
     Route: 042
     Dates: start: 201801

REACTIONS (3)
  - Unevaluable event [Unknown]
  - Dysphagia [Unknown]
  - Fine motor skill dysfunction [Unknown]
